FAERS Safety Report 8496425-8 (Version None)
Quarter: 2012Q3

REPORT INFORMATION
  Report Type: 
  Country: None (occurrence: None)
  Receive Date: 20120709
  Receipt Date: 20120629
  Transmission Date: 20120928
  Serious: Yes (Hospitalization)
  Sender: FDA-Public Use
  Company Number: US-BRISTOL-MYERS SQUIBB COMPANY-16440323

PATIENT
  Age: 15 Year
  Sex: Male
  Weight: 51 kg

DRUGS (1)
  1. IPILIMUMAB [Suspect]
     Indication: BONE SARCOMA
     Dosage: LAST ADMINISTERED DOSE:29FEB2012.
     Dates: start: 20111011

REACTIONS (2)
  - DIARRHOEA [None]
  - VOMITING [None]
